FAERS Safety Report 7471070-1 (Version None)
Quarter: 2011Q2

REPORT INFORMATION
  Report Type: 
  Country: None (occurrence: None)
  Receive Date: 20110510
  Receipt Date: 20110502
  Transmission Date: 20111010
  Serious: Yes (Death, Hospitalization)
  Sender: FDA-Public Use
  Company Number: NL-BRISTOL-MYERS SQUIBB COMPANY-15710353

PATIENT
  Age: 27 Year
  Sex: Male

DRUGS (3)
  1. BLEOMYCIN SULFATE [Suspect]
     Indication: TESTIS CANCER
  2. ETOPOSIDE [Suspect]
     Indication: TESTIS CANCER
  3. CISPLATIN [Suspect]
     Indication: TESTIS CANCER

REACTIONS (6)
  - RENAL FAILURE [None]
  - SUBCUTANEOUS EMPHYSEMA [None]
  - PNEUMONITIS [None]
  - LUNG INFECTION [None]
  - RESPIRATORY FAILURE [None]
  - PNEUMOMEDIASTINUM [None]
